FAERS Safety Report 16846874 (Version 1)
Quarter: 2019Q3

REPORT INFORMATION
  Report Type: Report from Study
  Country: CA (occurrence: CA)
  Receive Date: 20190924
  Receipt Date: 20190924
  Transmission Date: 20191005
  Serious: Yes (Other)
  Sender: FDA-Public Use
  Company Number: CA-TAKEDA-2018TUS036118

PATIENT
  Age: 46 Year
  Sex: Female

DRUGS (3)
  1. ACETAMINOPHEN. [Concomitant]
     Active Substance: ACETAMINOPHEN
     Dosage: 650 MG, UNK
     Route: 048
  2. CIPRALEX [Concomitant]
     Active Substance: ESCITALOPRAM OXALATE
     Dosage: UNK
  3. VEDOLIZUMAB [Suspect]
     Active Substance: VEDOLIZUMAB
     Indication: CROHN^S DISEASE
     Dosage: 300 MILLIGRAM
     Route: 042
     Dates: start: 20180326

REACTIONS (7)
  - Umbilical hernia [Unknown]
  - Staphylococcal infection [Unknown]
  - Weight increased [Unknown]
  - Iron deficiency [Unknown]
  - Arthralgia [Unknown]
  - Anaemia [Unknown]
  - Alopecia [Unknown]

NARRATIVE: CASE EVENT DATE: 20181210
